FAERS Safety Report 7428738 (Version 2)
Quarter: 2013Q4

REPORT INFORMATION
  Report Type: Report from Study
  Country: DE (occurrence: DE)
  Receive Date: 20100623
  Receipt Date: 20131101
  Transmission Date: 20140711
  Serious: Yes (Life-Threatening, Hospitalization, Other)
  Sender: FDA-Public Use
  Company Number: PHHY2008DE30595

PATIENT
  Age: 50 Year
  Sex: Female

DRUGS (8)
  1. AMN107 [Suspect]
     Indication: CHRONIC MYELOID LEUKAEMIA
     Dosage: 200 MG, BID
     Route: 048
     Dates: start: 20080229
  2. AMN107 [Suspect]
     Dosage: 200 MG, PER DAY
     Route: 048
     Dates: start: 20080328
  3. PANGROL ^BERLIN-CHEMIE^ [Concomitant]
     Route: 048
     Dates: start: 200801
  4. URSOFALK [Concomitant]
     Route: 048
     Dates: start: 200711
  5. LASIX [Concomitant]
     Route: 048
     Dates: start: 200711
  6. ALLOPURINOL [Concomitant]
     Route: 048
     Dates: start: 200711
  7. NEXIUM [Concomitant]
     Route: 048
     Dates: start: 200711
  8. PREDNISOLONE [Concomitant]
     Route: 048
     Dates: start: 200711

REACTIONS (7)
  - Sarcoma uterus [Recovered/Resolved]
  - Menorrhagia [Recovered/Resolved]
  - Haemoglobin decreased [Not Recovered/Not Resolved]
  - Alanine aminotransferase increased [Recovering/Resolving]
  - Gamma-glutamyltransferase increased [Recovering/Resolving]
  - Leukopenia [Recovered/Resolved]
  - Upper respiratory tract infection [Recovered/Resolved]
